FAERS Safety Report 7571860-0 (Version None)
Quarter: 2011Q2

REPORT INFORMATION
  Report Type: 
  Country: None (occurrence: None)
  Receive Date: 20110624
  Receipt Date: 20100706
  Transmission Date: 20111010
  Serious: No
  Sender: FDA-Public Use
  Company Number: A0851164A

PATIENT
  Age: 55 Year
  Sex: Female

DRUGS (2)
  1. VERAMYST [Suspect]
     Route: 045
  2. NO CONCURRENT MEDICATION [Concomitant]

REACTIONS (2)
  - EPISTAXIS [None]
  - PRODUCT QUALITY ISSUE [None]
